FAERS Safety Report 7349052-X (Version None)
Quarter: 2011Q1

REPORT INFORMATION
  Report Type: 
  Country: None (occurrence: None)
  Receive Date: 20110314
  Receipt Date: 20110304
  Transmission Date: 20110831
  Serious: Yes (Hospitalization, Other)
  Sender: FDA-Public Use
  Company Number: SG-SOLVAY-00211001868

PATIENT
  Age: 63 Year
  Sex: Female

DRUGS (2)
  1. PRILOSEC [Suspect]
     Indication: GASTRIC DISORDER
     Dosage: DAILY DOSE: 20 MILLIGRAM(S)
     Route: 048
     Dates: start: 20001210, end: 20010126
  2. COVERSYL 2 MG [Suspect]
     Indication: HYPERTENSION
     Dosage: DAILY DOSE: 2 MILLIGRAM(S)
     Route: 048
     Dates: start: 20001223, end: 20010122

REACTIONS (1)
  - STEVENS-JOHNSON SYNDROME [None]
